FAERS Safety Report 21572612 (Version 1)
Quarter: 2022Q4

REPORT INFORMATION
  Report Type: Spontaneous
  Country: KR (occurrence: KR)
  Receive Date: 20221109
  Receipt Date: 20221109
  Transmission Date: 20230113
  Serious: Yes (Other)
  Sender: FDA-Public Use
  Company Number: KR-MYLANLABS-2022M1123279

PATIENT
  Age: 70 Year
  Sex: Male

DRUGS (3)
  1. LYRICA [Suspect]
     Active Substance: PREGABALIN
     Indication: Pruritus
     Dosage: 75 MILLIGRAM, QD
     Route: 065
     Dates: start: 20200926, end: 20210308
  2. CHLORPHENIRAMINE MALEATE [Suspect]
     Active Substance: CHLORPHENIRAMINE MALEATE
     Indication: Pain
     Dosage: 4 MILLIGRAM, QD
     Route: 065
     Dates: start: 20200926, end: 20210308
  3. LEVOCETIRIZINE HYDROCHLORIDE [Suspect]
     Active Substance: LEVOCETIRIZINE HYDROCHLORIDE
     Indication: Prurigo
     Dosage: 5 MILLIGRAM, QD
     Route: 065
     Dates: start: 20200926, end: 20210308

REACTIONS (2)
  - Seizure [Recovered/Resolved]
  - Off label use [Unknown]

NARRATIVE: CASE EVENT DATE: 20200926
